FAERS Safety Report 9059221 (Version 1)
Quarter: 2013Q1

REPORT INFORMATION
  Report Type: Spontaneous
  Country: DE (occurrence: DE)
  Receive Date: 20130211
  Receipt Date: 20130211
  Transmission Date: 20140127
  Serious: Yes (Death)
  Sender: FDA-Public Use
  Company Number: DE-ASTELLAS-2013US001509

PATIENT
  Age: 57 None
  Sex: Male
  Weight: 93 kg

DRUGS (2)
  1. TARCEVA [Suspect]
     Indication: NON-SMALL CELL LUNG CANCER
     Dosage: 150 MG, UID/QD
     Route: 048
     Dates: start: 20130107, end: 20130120
  2. MORPHINE [Concomitant]
     Indication: PAIN
     Dosage: 120 MG, UID/QD
     Route: 048
     Dates: start: 201211

REACTIONS (2)
  - Death [Fatal]
  - Rash [Unknown]
